FAERS Safety Report 25099650 (Version 2)
Quarter: 2025Q3

REPORT INFORMATION
  Report Type: Report from Study
  Country: US (occurrence: US)
  Receive Date: 20250320
  Receipt Date: 20250809
  Transmission Date: 20251021
  Serious: Yes (Other)
  Sender: ALEXION PHARMACEUTICALS
  Company Number: US-ASTRAZENECA-202503USA011672US

PATIENT
  Age: 41 Year
  Sex: Female

DRUGS (2)
  1. STRENSIQ [Suspect]
     Active Substance: ASFOTASE ALFA
     Indication: Phosphorus metabolism disorder
     Dosage: 140 MILLIGRAM, TIW, AS DIRECTED
     Route: 065
  2. LEVOTHYROXINE [Suspect]
     Active Substance: LEVOTHYROXINE
     Route: 065

REACTIONS (8)
  - Cervix carcinoma [Unknown]
  - Hypothyroidism [Unknown]
  - Abdominal distension [Unknown]
  - Weight increased [Unknown]
  - Decreased appetite [Unknown]
  - Constipation [Unknown]
  - Insomnia [Unknown]
  - Pain [Unknown]

NARRATIVE: CASE EVENT DATE: 20250301
